FAERS Safety Report 4783436-9 (Version None)
Quarter: 2005Q3

REPORT INFORMATION
  Report Type: 
  Country: None (occurrence: None)
  Receive Date: 20050914
  Receipt Date: 20050104
  Transmission Date: 20060218
  Serious: Yes (Death, Disabling)
  Sender: FDA-Public Use
  Company Number: 163-20785-04040438

PATIENT
  Age: 78 Year
  Sex: Male

DRUGS (5)
  1. THALOMID [Suspect]
     Indication: MULTIPLE MYELOMA
     Dosage: 200 MG, QD,ORAL
     Route: 048
     Dates: start: 20040202, end: 20041229
  2. LOSARTAN POTASSIUM [Concomitant]
  3. POTASSIUM (POTASSIUM) [Concomitant]
  4. DIURETICS (DIURETICS) [Concomitant]
  5. VELCADE [Concomitant]

REACTIONS (5)
  - DEATH [None]
  - DISEASE PROGRESSION [None]
  - FALL [None]
  - NAUSEA [None]
  - PERIPHERAL SENSORY NEUROPATHY [None]
